FAERS Safety Report 6556957-6 (Version None)
Quarter: 2010Q1

REPORT INFORMATION
  Report Type: 
  Country: None (occurrence: None)
  Receive Date: 20100126
  Receipt Date: 20100119
  Transmission Date: 20100710
  Serious: Yes (Other)
  Sender: FDA-Public Use
  Company Number: SPV1-2010-00077

PATIENT
  Age: 7 Year
  Sex: Male
  Weight: 27.2 kg

DRUGS (3)
  1. ADDERALL XR (AMPHETAMINE ASPARTATE, AMPHETAMINE SULAFATE, DEXTROAMPHET [Suspect]
     Indication: DRUG USE FOR UNKNOWN INDICATION
     Dosage: 20 MG, 1X/DAY:QD, ORAL
     Route: 048
  2. GABAPENTIN [Concomitant]
  3. APO-SERTRALINE /01011401/ (SERTRALINE) [Concomitant]

REACTIONS (2)
  - AGGRESSION [None]
  - DRUG INEFFECTIVE [None]
